FAERS Safety Report 5091218-6 (Version None)
Quarter: 2006Q3

REPORT INFORMATION
  Report Type: 
  Country: None (occurrence: None)
  Receive Date: 20060727
  Receipt Date: 20060504
  Transmission Date: 20061208
  Serious: Yes (Other)
  Sender: FDA-Public Use
  Company Number: 2006060475

PATIENT
  Age: 63 Year
  Sex: Male
  Weight: 86.1834 kg

DRUGS (5)
  1. LYRICA [Suspect]
     Indication: MYELOPATHY
     Dosage: 150 MG (150 MG,1 IN 1 D),ORAL
     Route: 048
     Dates: start: 20060301
  2. CADUET [Concomitant]
  3. QUINAPRIL AND HYDROCHLOROTHIAZIDE (HYDROCHLOROTHIAZIDE, QUINAPRIL HYDR [Concomitant]
  4. VITAMINS (VITAMINS) [Concomitant]
  5. CELEBREX [Concomitant]

REACTIONS (1)
  - DRUG INEFFECTIVE [None]
